FAERS Safety Report 6278239-2 (Version None)
Quarter: 2009Q3

REPORT INFORMATION
  Report Type: 
  Country: None (occurrence: None)
  Receive Date: 20090722
  Receipt Date: 20090722
  Transmission Date: 20100115
  Serious: Yes (Hospitalization)
  Sender: FDA-Public Use
  Company Number: US-ROXANE LABORATORIES, INC.-2009-RO-00734RO

PATIENT
  Age: 54 Year
  Sex: Female

DRUGS (4)
  1. MORPHINE [Suspect]
     Indication: PAIN
     Dosage: 180 MG
     Route: 048
     Dates: start: 19940101, end: 20060101
  2. ACETAMINOPHEN AND OXYCODONE HCL [Suspect]
     Indication: NEURODEGENERATIVE DISORDER
     Route: 048
     Dates: start: 20090601
  3. ACETAMINOPHEN AND OXYCODONE HCL [Suspect]
     Indication: SURGERY
     Route: 048
     Dates: start: 20040101, end: 20090601
  4. ACETAMINOPHEN AND OXYCODONE HCL [Suspect]
     Indication: PAIN

REACTIONS (3)
  - DRUG INEFFECTIVE [None]
  - FALSE POSITIVE LABORATORY RESULT [None]
  - ISCHAEMIA [None]
